FAERS Safety Report 6288111-X (Version None)
Quarter: 2009Q3

REPORT INFORMATION
  Report Type: 
  Country: None (occurrence: None)
  Receive Date: 20090729
  Receipt Date: 20081027
  Transmission Date: 20100115
  Serious: No
  Sender: FDA-Public Use
  Company Number: A0753870A

PATIENT
  Age: 68 Year
  Sex: Male

DRUGS (2)
  1. ZANTAC [Suspect]
     Indication: DUODENAL ULCER
     Dosage: 150MG TWICE PER DAY
     Route: 048
     Dates: start: 20080701
  2. CARAFATE [Concomitant]

REACTIONS (1)
  - ALOPECIA [None]
